FAERS Safety Report 6023600-4 (Version None)
Quarter: 2008Q4

REPORT INFORMATION
  Report Type: 
  Country: None (occurrence: None)
  Receive Date: 20081226
  Receipt Date: 20081226
  Transmission Date: 20090506
  Serious: No
  Sender: FDA-Public Use
  Company Number: None

PATIENT
  Sex: Female
  Weight: 50.8029 kg

DRUGS (1)
  1. KENALOG [Suspect]

REACTIONS (7)
  - ANXIETY [None]
  - ARTHROPATHY [None]
  - DEFORMITY [None]
  - ILL-DEFINED DISORDER [None]
  - MENTAL DISORDER [None]
  - PAIN [None]
  - RASH [None]
